FAERS Safety Report 4689308-2 (Version None)
Quarter: 2005Q2

REPORT INFORMATION
  Report Type: 
  Country: None (occurrence: None)
  Receive Date: 20050608
  Receipt Date: 20050324
  Transmission Date: 20051028
  Serious: No
  Sender: FDA-Public Use
  Company Number: 2005-BP-05114BP

PATIENT
  Age: 69 Year
  Sex: Female

DRUGS (6)
  1. SPIRIVA [Suspect]
     Indication: CHRONIC OBSTRUCTIVE PULMONARY DISEASE
     Dosage: 18 MCG (18 MCG, QD), IH
     Route: 055
     Dates: start: 20050101
  2. ADVAIR DISKUS 100/50 [Suspect]
     Indication: CHRONIC OBSTRUCTIVE PULMONARY DISEASE
     Dosage: (NR, BID), IH
     Route: 055
     Dates: start: 20050101
  3. PLAVIX [Concomitant]
  4. ATENOLOL [Concomitant]
  5. PRAVACHOL [Concomitant]
  6. HYDROCHLOROTHIAZIDE [Concomitant]

REACTIONS (5)
  - DRY MOUTH [None]
  - DRY THROAT [None]
  - DYSPHONIA [None]
  - NASAL DRYNESS [None]
  - WEIGHT INCREASED [None]
